FAERS Safety Report 19711140 (Version 1)
Quarter: 2021Q3

REPORT INFORMATION
  Report Type: Spontaneous
  Country: IN (occurrence: IN)
  Receive Date: 20210817
  Receipt Date: 20210817
  Transmission Date: 20211014
  Serious: Yes (Death, Other)
  Sender: FDA-Public Use
  Company Number: IN-PFIZER INC-2017344225

PATIENT
  Age: 40 Year
  Sex: Female
  Weight: 69.3 kg

DRUGS (4)
  1. PALBACE [Suspect]
     Active Substance: PALBOCICLIB
     Indication: BREAST CANCER METASTATIC
     Dosage: 125 MG, ONCE A DAY
     Route: 048
     Dates: end: 20170704
  2. LETROZOLE. [Concomitant]
     Active Substance: LETROZOLE
     Dosage: 2.5 MG, UNK
  3. ZOLEDRONIC ACID [Concomitant]
     Active Substance: ZOLEDRONIC ACID
     Dosage: UNK
  4. PALBACE [Suspect]
     Active Substance: PALBOCICLIB
     Dosage: 125 MG, ONCE A DAY
     Route: 048
     Dates: start: 20170722

REACTIONS (9)
  - Koilonychia [Unknown]
  - Blood glucose increased [Unknown]
  - Rash [Recovered/Resolved]
  - Oedema [Unknown]
  - Neutrophil count decreased [Unknown]
  - Pallor [Unknown]
  - Myocardial infarction [Fatal]
  - Arthralgia [Unknown]
  - Pain in extremity [Unknown]
